FAERS Safety Report 20017672 (Version 3)
Quarter: 2022Q1

REPORT INFORMATION
  Report Type: Spontaneous
  Country: US (occurrence: US)
  Receive Date: 20211031
  Receipt Date: 20220120
  Transmission Date: 20220423
  Serious: No
  Sender: FDA-Public Use
  Company Number: US-009507513-2110USA008496

PATIENT
  Sex: Female

DRUGS (1)
  1. JANUMET XR [Suspect]
     Active Substance: METFORMIN HYDROCHLORIDE\SITAGLIPTIN PHOSPHATE
     Dosage: STRENGTH: 50-1000 MG, TAKE ONE TABLET TWICE A DAY
     Route: 048

REACTIONS (8)
  - Product contamination physical [Unknown]
  - Inappropriate schedule of product administration [Unknown]
  - Product coating issue [Unknown]
  - Product physical issue [Unknown]
  - Product dose omission issue [Unknown]
  - Product dose omission issue [Unknown]
  - Product commingling [Unknown]
  - No adverse event [Unknown]

NARRATIVE: CASE EVENT DATE: 20211025
